FAERS Safety Report 9858063 (Version 1)
Quarter: 2014Q1

REPORT INFORMATION
  Report Type: Spontaneous
  Country: US (occurrence: US)
  Receive Date: 20140131
  Receipt Date: 20140131
  Transmission Date: 20141002
  Serious: No
  Sender: FDA-Public Use
  Company Number: US-TEVA-458593USA

PATIENT
  Age: 61 Year
  Sex: Male
  Weight: 90.35 kg

DRUGS (8)
  1. TREANDA [Suspect]
     Indication: CHRONIC LYMPHOCYTIC LEUKAEMIA
     Dosage: DAY 1 AND 2
     Dates: start: 20130810
  2. RITUXAN [Suspect]
     Dosage: DAY 1, EVERY 28 DAYS FOR A TOTAL OF 6 CYCLES
  3. ZOFRAN [Concomitant]
     Indication: NAUSEA
     Dosage: 16 MILLIGRAM DAILY;
  4. ALLOPURINOL [Concomitant]
     Indication: PRODUCT USED FOR UNKNOWN INDICATION
     Dosage: 300 MILLIGRAM DAILY;
  5. FIORICET [Concomitant]
     Indication: PRODUCT USED FOR UNKNOWN INDICATION
  6. BENADRYL [Concomitant]
     Dosage: 50 MILLIGRAM DAILY;
  7. DECADRON [Concomitant]
     Dosage: 12 MILLIGRAM DAILY;
  8. TYLENOL [Concomitant]
     Indication: PAIN

REACTIONS (3)
  - Feeling cold [Recovered/Resolved]
  - Tremor [Recovered/Resolved]
  - Chills [Recovered/Resolved]
